FAERS Safety Report 8877734 (Version 1)
Quarter: 2012Q4

REPORT INFORMATION
  Report Type: 
  Country: US (occurrence: US)
  Receive Date: 20121024
  Receipt Date: 20121024
  Transmission Date: 20130627
  Serious: Yes (Other)
  Sender: FDA-Public Use
  Company Number: US-BAYER-2012-108204

PATIENT
  Age: 75 Year
  Sex: Male

DRUGS (1)
  1. NEXAVAR [Suspect]
     Indication: MALIGNANT URINARY TRACT NEOPLASM NOS
     Dosage: 400 mg, BID
     Route: 048
     Dates: start: 20120922, end: 20121010

REACTIONS (6)
  - Face oedema [None]
  - Erythema [None]
  - Pruritus [None]
  - Pain [None]
  - Rash [None]
  - Alopecia [None]
